FAERS Safety Report 6284920-1 (Version None)
Quarter: 2009Q3

REPORT INFORMATION
  Report Type: 
  Country: None (occurrence: None)
  Receive Date: 20090723
  Receipt Date: 20090717
  Transmission Date: 20100115
  Serious: Yes (Other)
  Sender: FDA-Public Use
  Company Number: 2009SP016107

PATIENT
  Age: 37 Year
  Sex: Male

DRUGS (7)
  1. CELESTAMINE TAB [Suspect]
     Indication: DERMATITIS ATOPIC
     Dosage: PO
     Route: 048
     Dates: end: 20020101
  2. CORTISONE ACETATE [Suspect]
     Indication: DERMATITIS ATOPIC
     Dosage: TOP
     Route: 061
  3. NEORAL [Concomitant]
     Indication: DERMATITIS ATOPIC
     Dosage: 250 MG; PO; 100 MG; PO; 75 MG; PO; 50 MG; PO
     Route: 048
     Dates: start: 20030301, end: 20030411
  4. NEORAL [Concomitant]
     Indication: DERMATITIS ATOPIC
     Dosage: 250 MG; PO; 100 MG; PO; 75 MG; PO; 50 MG; PO
     Route: 048
     Dates: start: 20020201
  5. NEORAL [Concomitant]
     Indication: DERMATITIS ATOPIC
     Dosage: 250 MG; PO; 100 MG; PO; 75 MG; PO; 50 MG; PO
     Route: 048
     Dates: start: 20020501
  6. NEORAL [Concomitant]
     Indication: DERMATITIS ATOPIC
     Dosage: 250 MG; PO; 100 MG; PO; 75 MG; PO; 50 MG; PO
     Route: 048
     Dates: start: 20021101
  7. PROTOPIC [Concomitant]

REACTIONS (4)
  - ANAPLASTIC LARGE CELL LYMPHOMA T- AND NULL-CELL TYPES STAGE I [None]
  - GLAUCOMA [None]
  - KERATOCONUS [None]
  - SECONDARY ADRENOCORTICAL INSUFFICIENCY [None]
